FAERS Safety Report 5700025-X (Version None)
Quarter: 2008Q2

REPORT INFORMATION
  Report Type: 
  Country: None (occurrence: None)
  Receive Date: 20080410
  Receipt Date: 20080402
  Transmission Date: 20081010
  Serious: Yes (Hospitalization)
  Sender: FDA-Public Use
  Company Number: US-ASTRAZENECA-2008UW06611

PATIENT
  Age: 83 Year
  Sex: Female
  Weight: 64.4 kg

DRUGS (9)
  1. ATACAND [Suspect]
     Indication: HYPERTENSION
     Route: 048
     Dates: start: 20070118, end: 20071210
  2. ATACAND [Suspect]
     Route: 048
     Dates: start: 20071212
  3. ASPIRIN [Concomitant]
  4. PRILOSEC [Concomitant]
     Route: 048
  5. ZOLOFT [Concomitant]
  6. PLAVIX [Concomitant]
  7. ZETIA [Concomitant]
  8. ZOCOR [Concomitant]
     Dates: start: 20070116, end: 20080303
  9. IMDUR [Concomitant]

REACTIONS (1)
  - DIVERTICULITIS [None]
